FAERS Safety Report 6699911-6 (Version None)
Quarter: 2010Q2

REPORT INFORMATION
  Report Type: 
  Country: None (occurrence: None)
  Receive Date: 20100428
  Receipt Date: 20100422
  Transmission Date: 20101027
  Serious: Yes (Other)
  Sender: FDA-Public Use
  Company Number: US-NAPPMUNDI-USA-2010-0043524

PATIENT
  Age: 55 Year
  Sex: Male

DRUGS (3)
  1. OXYCONTIN [Suspect]
     Indication: BACK PAIN
     Dosage: UNK MG, Q6H
     Dates: start: 19990101
  2. OXYCONTIN [Suspect]
     Indication: TOOTHACHE
  3. OXYCONTIN [Suspect]
     Indication: WRIST FRACTURE

REACTIONS (8)
  - BACK PAIN [None]
  - DRUG WITHDRAWAL SYNDROME [None]
  - ENDODONTIC PROCEDURE [None]
  - FALL [None]
  - GINGIVAL INFECTION [None]
  - INJURY [None]
  - RHINORRHOEA [None]
  - WRIST FRACTURE [None]
